FAERS Safety Report 17346807 (Version 1)
Quarter: 2020Q1

REPORT INFORMATION
  Report Type: Spontaneous
  Country: US (occurrence: US)
  Receive Date: 20200114
  Receipt Date: 20200114
  Transmission Date: 20200409
  Serious: No
  Sender: FDA-Public Use
  Company Number: None

PATIENT
  Age: 75 Year
  Sex: Male
  Weight: 78 kg

DRUGS (1)
  1. LANTHANUM (LANTHANUM CARBONATE 500MG TAB CHEWABLE [Suspect]
     Active Substance: LANTHANUM
     Indication: CARDIAC FAILURE CONGESTIVE
     Dates: start: 20191117, end: 20200103

REACTIONS (3)
  - Abdominal pain upper [None]
  - Nausea [None]
  - Vomiting [None]

NARRATIVE: CASE EVENT DATE: 20191220
